FAERS Safety Report 4427883-3 (Version None)
Quarter: 2004Q3

REPORT INFORMATION
  Report Type: 
  Country: None (occurrence: None)
  Receive Date: 20040813
  Receipt Date: 20040806
  Transmission Date: 20050211
  Serious: Yes (Life-Threatening, Hospitalization, Other)
  Sender: FDA-Public Use
  Company Number: US-JNJFOC-20040802144

PATIENT
  Age: 21 Year
  Sex: Male

DRUGS (2)
  1. REGULAR STRENGTH TYLENOL (ACETAMINOPHEN) [Suspect]
     Indication: TOOTHACHE
     Dosage: 975 MG, 3 IN 1 DAY, 1 IN 1 TOTAL
     Dates: start: 20040503, end: 20040504
  2. IBUPROFEN (UNSPECIFIED) IBUPROFEN [Concomitant]

REACTIONS (4)
  - ABDOMINAL PAIN UPPER [None]
  - DRUG LEVEL INCREASED [None]
  - HEPATIC FAILURE [None]
  - VOMITING [None]
